FAERS Safety Report 8413476-X (Version None)
Quarter: 2012Q2

REPORT INFORMATION
  Report Type: 
  Country: None (occurrence: None)
  Receive Date: 20120605
  Receipt Date: 20120525
  Transmission Date: 20120825
  Serious: Yes (Death, Hospitalization)
  Sender: FDA-Public Use
  Company Number: ES-JNJFOC-20120521206

PATIENT
  Sex: Male
  Weight: 72 kg

DRUGS (1)
  1. REMICADE [Suspect]
     Indication: COLITIS ULCERATIVE
     Route: 042

REACTIONS (2)
  - UPPER GASTROINTESTINAL HAEMORRHAGE [None]
  - DEATH [None]
